FAERS Safety Report 5485294-6 (Version None)
Quarter: 2007Q4

REPORT INFORMATION
  Report Type: 
  Country: None (occurrence: None)
  Receive Date: 20071010
  Receipt Date: 20071010
  Transmission Date: 20080405
  Serious: Yes (Other)
  Sender: FDA-Public Use
  Company Number: None

PATIENT
  Age: 82 Year
  Sex: Male

DRUGS (1)
  1. DEFINITY [Suspect]
     Dosage: 1.5 ML ONCE IV BOLUS
     Route: 040
     Dates: start: 20070920, end: 20070920

REACTIONS (2)
  - HEART RATE INCREASED [None]
  - PAIN [None]
